FAERS Safety Report 12532602 (Version 6)
Quarter: 2016Q3

REPORT INFORMATION
  Report Type: Report from Study
  Country: US (occurrence: US)
  Receive Date: 20160706
  Receipt Date: 20160921
  Transmission Date: 20161109
  Serious: Yes (Other)
  Sender: FDA-Public Use
  Company Number: PHEH2016US016665

PATIENT
  Age: 44 Year
  Sex: Female

DRUGS (1)
  1. GILENYA [Suspect]
     Active Substance: FINGOLIMOD HYDROCHLORIDE
     Indication: RELAPSING-REMITTING MULTIPLE SCLEROSIS
     Dosage: 0.5 MG, QD
     Route: 048
     Dates: start: 20160622

REACTIONS (9)
  - Eye pruritus [Not Recovered/Not Resolved]
  - Eye discharge [Unknown]
  - White blood cell count decreased [Unknown]
  - Aura [Unknown]
  - Sinusitis [Recovering/Resolving]
  - Blindness transient [Recovering/Resolving]
  - Colour blindness acquired [Unknown]
  - Palpitations [Unknown]
  - Vitreous floaters [Recovering/Resolving]

NARRATIVE: CASE EVENT DATE: 20160622
